FAERS Safety Report 10251407 (Version 4)
Quarter: 2016Q2

REPORT INFORMATION
  Report Type: Report from Study
  Country: FR (occurrence: FR)
  Receive Date: 20140623
  Receipt Date: 20160428
  Transmission Date: 20160815
  Serious: Yes (Hospitalization)
  Sender: FDA-Public Use
  Company Number: FR-ROCHE-1421385

PATIENT
  Age: 53 Year
  Sex: Female
  Weight: 100 kg

DRUGS (11)
  1. ASCORBIC ACID. [Concomitant]
     Active Substance: ASCORBIC ACID
  2. NICOTINAMIDE [Concomitant]
     Active Substance: NIACINAMIDE
  3. CALCIPARINE [Concomitant]
     Active Substance: HEPARIN CALCIUM
  4. INEXIUM [Concomitant]
     Active Substance: ESOMEPRAZOLE
  5. GATIFLOXACIN. [Concomitant]
     Active Substance: GATIFLOXACIN
  6. PEG-INTERFERON ALFA 2A [Suspect]
     Active Substance: PEGINTERFERON ALFA-2A
     Indication: HEPATITIS C
     Dosage: TOTAL OF 3 INJECTIONS
     Route: 065
     Dates: start: 20140423, end: 20140509
  7. DECAN (FRANCE) [Concomitant]
     Active Substance: MINERALS
  8. RIBAVIRIN. [Suspect]
     Active Substance: RIBAVIRIN
     Indication: HEPATITIS C
     Dosage: 2 TABLETS IN THE MORNING AND 3 TABLETS IN THE EVENING
     Route: 065
     Dates: start: 20140423, end: 20140509
  9. SOFOSBUVIR [Suspect]
     Active Substance: SOFOSBUVIR
     Indication: HEPATITIS C
     Route: 065
     Dates: start: 20140423, end: 20140509
  10. VITAMIN B1 [Concomitant]
     Active Substance: THIAMINE HYDROCHLORIDE
  11. VITAMIN B6 [Concomitant]
     Active Substance: PYRIDOXINE HYDROCHLORIDE

REACTIONS (3)
  - Off label use [Unknown]
  - Nervous system disorder [Recovered/Resolved with Sequelae]
  - Posterior reversible encephalopathy syndrome [Not Recovered/Not Resolved]

NARRATIVE: CASE EVENT DATE: 20140505
